FAERS Safety Report 4948963-X (Version None)
Quarter: 2006Q1

REPORT INFORMATION
  Report Type: 
  Country: None (occurrence: None)
  Receive Date: 20060321
  Receipt Date: 20060315
  Transmission Date: 20060701
  Serious: Yes (Other)
  Sender: FDA-Public Use
  Company Number: JP-AVENTIS-200610838JP

PATIENT

DRUGS (1)
  1. TAXOTERE [Suspect]
     Indication: OESOPHAGEAL CARCINOMA
     Dosage: DOSE: 80 MG/BODY
     Route: 041

REACTIONS (1)
  - CARDIAC TAMPONADE [None]
